FAERS Safety Report 9700830 (Version 1)
Quarter: 2013Q4

REPORT INFORMATION
  Report Type: Spontaneous
  Country: US (occurrence: US)
  Receive Date: 20131121
  Receipt Date: 20131121
  Transmission Date: 20140711
  Serious: No
  Sender: FDA-Public Use
  Company Number: US-VERTEX PHARMACEUTICALS INC-2013-011244

PATIENT
  Sex: Female
  Weight: 107 kg

DRUGS (10)
  1. INCIVEK [Suspect]
     Indication: HEPATITIS C
     Dosage: 750 MG, TID
     Route: 048
     Dates: start: 20131011
  2. PEGASYS [Suspect]
     Indication: HEPATITIS C
     Dosage: 180 ?G, QW
     Dates: start: 20131011
  3. RIBAVIRIN [Suspect]
     Indication: HEPATITIS C
     Dosage: 800 MG, QD
     Dates: start: 20131011
  4. LEXAPRO [Concomitant]
     Indication: DEPRESSION
  5. ESCITALOPRAM [Concomitant]
     Indication: DEPRESSION
  6. TYLENOL ARTHRITIS [Concomitant]
  7. SYNTHROID [Concomitant]
  8. SPIRIVA COMBI [Concomitant]
     Indication: ASTHMA
  9. ADVAIR [Concomitant]
  10. CETIRIZINE [Concomitant]
     Dosage: 10 MG, UNK

REACTIONS (2)
  - Photophobia [Not Recovered/Not Resolved]
  - Anaemia [Not Recovered/Not Resolved]
